FAERS Safety Report 4445753-1 (Version None)
Quarter: 2004Q3

REPORT INFORMATION
  Report Type: 
  Country: None (occurrence: None)
  Receive Date: 20040910
  Receipt Date: 20040902
  Transmission Date: 20050211
  Serious: Yes (Death, Hospitalization)
  Sender: FDA-Public Use
  Company Number: IT-JNJFOC-20040501514

PATIENT
  Sex: Male

DRUGS (7)
  1. DURAGESIC [Suspect]
     Indication: OSTEOARTHRITIS
     Route: 062
  2. COEFFERALGAN [Concomitant]
     Route: 049
  3. COEFFERALGAN [Concomitant]
     Indication: PAIN
     Route: 049
  4. DELAPRIDE [Concomitant]
  5. DELAPRIDE [Concomitant]
  6. TERAZOSIN HCL [Concomitant]
  7. CELECOXIB [Concomitant]

REACTIONS (5)
  - COMA [None]
  - CONFUSIONAL STATE [None]
  - INADEQUATE ANALGESIA [None]
  - OLIGURIA [None]
  - VOMITING [None]
